FAERS Safety Report 15246242 (Version 2)
Quarter: 2018Q3

REPORT INFORMATION
  Report Type: Spontaneous
  Country: US (occurrence: US)
  Receive Date: 20180806
  Receipt Date: 20180813
  Transmission Date: 20181010
  Serious: No
  Sender: FDA-Public Use
  Company Number: US-SUNOVION-2018SUN003018

PATIENT
  Age: 42 Year
  Sex: Male
  Weight: 77.98 kg

DRUGS (1)
  1. LATUDA [Suspect]
     Active Substance: LURASIDONE HYDROCHLORIDE
     Indication: SCHIZOPHRENIA
     Dosage: UNK
     Route: 048

REACTIONS (9)
  - Disorientation [Unknown]
  - Speech disorder [Not Recovered/Not Resolved]
  - Abnormal behaviour [Unknown]
  - Hallucination, visual [Not Recovered/Not Resolved]
  - Insomnia [Unknown]
  - Confusional state [Not Recovered/Not Resolved]
  - Akathisia [Unknown]
  - Fall [Not Recovered/Not Resolved]
  - Overdose [Not Recovered/Not Resolved]

NARRATIVE: CASE EVENT DATE: 20180728
